FAERS Safety Report 19329151 (Version 1)
Quarter: 2021Q2

REPORT INFORMATION
  Report Type: Spontaneous
  Country: CN (occurrence: CN)
  Receive Date: 20210528
  Receipt Date: 20210528
  Transmission Date: 20210717
  Serious: Yes (Hospitalization, Other)
  Sender: FDA-Public Use
  Company Number: CN-PFIZER INC-2021571087

PATIENT
  Age: 81 Year
  Sex: Male

DRUGS (4)
  1. BETALOC ZOK [Concomitant]
     Active Substance: METOPROLOL SUCCINATE
     Indication: HYPERTENSION
     Dosage: 47.5 MG, DAILY
  2. DIOVAN [Concomitant]
     Active Substance: VALSARTAN
     Indication: HYPERTENSION
     Dosage: 80 MG, DAILY
  3. DIOVAN [Concomitant]
     Active Substance: VALSARTAN
     Dosage: 1 DF
  4. NORVASC [Suspect]
     Active Substance: AMLODIPINE BESYLATE
     Indication: HYPERTENSION
     Dosage: 5.0 MG, 1X/DAY
     Route: 048
     Dates: start: 20200101, end: 20210510

REACTIONS (9)
  - Tricuspid valve incompetence [Unknown]
  - Oedema peripheral [Recovered/Resolved]
  - Aortic arteriosclerosis [Unknown]
  - Myocardial infarction [Unknown]
  - Aortic dilatation [Unknown]
  - Aortic valve stenosis [Unknown]
  - Left atrial enlargement [Unknown]
  - Pulmonary arterial hypertension [Unknown]
  - Diastolic dysfunction [Unknown]

NARRATIVE: CASE EVENT DATE: 20210503
